FAERS Safety Report 8571019-4 (Version None)
Quarter: 2012Q3

REPORT INFORMATION
  Report Type: 
  Country: None (occurrence: None)
  Receive Date: 20120806
  Receipt Date: 20120717
  Transmission Date: 20120928
  Serious: Yes (Hospitalization)
  Sender: FDA-Public Use
  Company Number: JP-SP-2012-05718

PATIENT
  Sex: Male

DRUGS (1)
  1. IMMUCYST [Suspect]
     Indication: BLADDER CANCER
     Route: 043
     Dates: start: 20120509, end: 20120509

REACTIONS (5)
  - MYALGIA [None]
  - C-REACTIVE PROTEIN INCREASED [None]
  - PAIN [None]
  - PYREXIA [None]
  - REITER'S SYNDROME [None]
